FAERS Safety Report 9736047 (Version 5)
Quarter: 2016Q4

REPORT INFORMATION
  Report Type: Spontaneous
  Country: US (occurrence: US)
  Receive Date: 20131206
  Receipt Date: 20161123
  Transmission Date: 20170207
  Serious: Yes (Hospitalization, Disabling, Other)
  Sender: FDA-Public Use
  Company Number: US-009507513-1312USA001917

PATIENT
  Sex: Female

DRUGS (3)
  1. FOSAMAX [Suspect]
     Active Substance: ALENDRONATE SODIUM
     Dosage: 70 MG, QW
     Route: 048
     Dates: start: 20041018, end: 20060802
  2. FOSAMAX [Suspect]
     Active Substance: ALENDRONATE SODIUM
     Indication: OSTEOPOROSIS
     Dosage: 70 MG, UNKNOWN
     Route: 048
     Dates: start: 2006, end: 2007
  3. FOSAMAX PLUS D [Suspect]
     Active Substance: ALENDRONATE SODIUM\CHOLECALCIFEROL
     Indication: OSTEOPOROSIS
     Dosage: 70 MG/2800 MG
     Route: 048
     Dates: start: 20070305, end: 20071114

REACTIONS (32)
  - Femur fracture [Unknown]
  - Fracture [Unknown]
  - Osteoporosis [Not Recovered/Not Resolved]
  - Facet joint syndrome [Unknown]
  - Extraskeletal ossification [Unknown]
  - Joint contracture [Unknown]
  - Drug ineffective [Unknown]
  - Lower limb fracture [Unknown]
  - Hip arthroplasty [Unknown]
  - Femur fracture [Not Recovered/Not Resolved]
  - Spinal osteoarthritis [Unknown]
  - Hip fracture [Not Recovered/Not Resolved]
  - Fall [Unknown]
  - Intervertebral disc space narrowing [Unknown]
  - Spinal osteoarthritis [Unknown]
  - Hypertension [Unknown]
  - Hypercholesterolaemia [Unknown]
  - Back pain [Unknown]
  - Open reduction of fracture [Unknown]
  - Bone operation [Unknown]
  - Muscle tightness [Unknown]
  - Bone erosion [Unknown]
  - Joint ankylosis [Unknown]
  - Low turnover osteopathy [Not Recovered/Not Resolved]
  - Open reduction of fracture [Unknown]
  - Osteopenia [Unknown]
  - Kyphosis [Unknown]
  - Osteoarthritis [Unknown]
  - Radiotherapy [Unknown]
  - Flatulence [Not Recovered/Not Resolved]
  - Hip arthroplasty [Unknown]
  - Abdominal pain [Unknown]

NARRATIVE: CASE EVENT DATE: 20080408
